FAERS Safety Report 4546011-7 (Version None)
Quarter: 2005Q1

REPORT INFORMATION
  Report Type: 
  Country: None (occurrence: None)
  Receive Date: 20050103
  Receipt Date: 20041221
  Transmission Date: 20050727
  Serious: Yes (Hospitalization)
  Sender: FDA-Public Use
  Company Number: F03200400131

PATIENT
  Age: 54 Year
  Sex: Male

DRUGS (3)
  1. ELOXATIN [Suspect]
     Indication: COLON CANCER STAGE III
     Dosage: 85 MG/M2   1/1/ CYCLE - INTRAVENOUS NOS
     Route: 042
     Dates: start: 20041124, end: 20041124
  2. FLUOROURACIL [Suspect]
     Indication: COLON CANCER STAGE III
     Dosage: 400 MG/M2 IV PUSH ON DAY 1, FOLLOWED BY 2400 MG/M2 CONT INFUSION OVER 46-48 HOURS Q2W FOR 12 CYCLES-
     Route: 042
     Dates: start: 20041124
  3. LEUCOVORIN CALCIUM [Suspect]
     Indication: COLON CANCER STAGE III
     Dosage: 400 MG/KG  1/1 CYCLE - INTRAVENOUS NOS
     Route: 042
     Dates: start: 20041124, end: 20041124

REACTIONS (9)
  - ASTHENIA [None]
  - CHEST DISCOMFORT [None]
  - COMA [None]
  - DEPRESSED LEVEL OF CONSCIOUSNESS [None]
  - NODAL ARRHYTHMIA [None]
  - PALPITATIONS [None]
  - SUPRAVENTRICULAR TACHYCARDIA [None]
  - VENTRICULAR ARRHYTHMIA [None]
  - VENTRICULAR EXTRASYSTOLES [None]
